FAERS Safety Report 13395162 (Version 1)
Quarter: 2017Q1

REPORT INFORMATION
  Report Type: Spontaneous
  Country: US (occurrence: US)
  Receive Date: 20170331
  Receipt Date: 20170331
  Transmission Date: 20170429
  Serious: Yes (Disabling, Other)
  Sender: FDA-Public Use
  Company Number: None

PATIENT
  Age: 55 Year
  Sex: Female
  Weight: 72 kg

DRUGS (2)
  1. JOLIVETTE [Suspect]
     Active Substance: NORETHINDRONE
     Indication: MENORRHAGIA
     Dates: start: 20091002, end: 20091202
  2. NATURE-THROID [Concomitant]
     Active Substance: THYROID, PORCINE

REACTIONS (4)
  - Dysphagia [None]
  - Dyspnoea [None]
  - Autoimmune dermatitis [None]
  - Pain [None]

NARRATIVE: CASE EVENT DATE: 20100115
